FAERS Safety Report 7043677-7 (Version None)
Quarter: 2010Q4

REPORT INFORMATION
  Report Type: 
  Country: None (occurrence: None)
  Receive Date: 20101013
  Receipt Date: 20101008
  Transmission Date: 20110411
  Serious: Yes (Other)
  Sender: FDA-Public Use
  Company Number: TH-GILEAD-2010-0032431

PATIENT
  Age: 42 Year
  Sex: Female

DRUGS (1)
  1. HEPSERA [Suspect]
     Route: 048
     Dates: start: 20090331

REACTIONS (1)
  - ABORTION SPONTANEOUS [None]
